FAERS Safety Report 9011000 (Version 1)
Quarter: 2013Q1

REPORT INFORMATION
  Report Type: Spontaneous
  Country: US (occurrence: US)
  Receive Date: 20130109
  Receipt Date: 20130109
  Transmission Date: 20140127
  Serious: No
  Sender: FDA-Public Use
  Company Number: US-ASTRAZENECA-2012SE96236

PATIENT
  Age: 48 Year
  Sex: Male
  Weight: 97.1 kg

DRUGS (4)
  1. CRESTOR [Suspect]
     Indication: BLOOD CHOLESTEROL INCREASED
     Route: 048
     Dates: start: 2005
  2. HYDROCHLOROTHIAZIDE [Concomitant]
     Indication: HYPERTENSION
  3. LORATIDINE [Concomitant]
     Indication: HYPERTENSION
  4. SINUS RINSE [Concomitant]
     Indication: SINUS DISORDER

REACTIONS (11)
  - Hypertension [Recovered/Resolved]
  - Sinus disorder [Unknown]
  - Hepatic steatosis [Unknown]
  - Hepatic enzyme abnormal [Unknown]
  - Blood triglycerides increased [Unknown]
  - Low density lipoprotein increased [Unknown]
  - Blood cholesterol increased [Unknown]
  - Hepatic function abnormal [Unknown]
  - Abdominal pain upper [Unknown]
  - Drug dose omission [Unknown]
  - Intentional drug misuse [Unknown]
